FAERS Safety Report 19116243 (Version 1)
Quarter: 2021Q2

REPORT INFORMATION
  Report Type: Spontaneous
  Country: US (occurrence: US)
  Receive Date: 20210409
  Receipt Date: 20210409
  Transmission Date: 20210717
  Serious: No
  Sender: FDA-Public Use
  Company Number: US-ASTELLAS-2021US003337

PATIENT
  Sex: Female

DRUGS (2)
  1. PROGRAF [Suspect]
     Active Substance: TACROLIMUS
     Indication: PANCREAS TRANSPLANT
  2. PROGRAF [Suspect]
     Active Substance: TACROLIMUS
     Indication: RENAL TRANSPLANT
     Dosage: 2 MG, TWICE DAILY (2 CAPSULES IN THE MORNING AND TWO CAPSULES IN THE EVENING)
     Route: 065
     Dates: start: 2008

REACTIONS (4)
  - Product storage error [Unknown]
  - Product use in unapproved indication [Unknown]
  - Drug level fluctuating [Unknown]
  - Dyspnoea [Unknown]
